FAERS Safety Report 21035018 (Version 2)
Quarter: 2022Q3

REPORT INFORMATION
  Report Type: Spontaneous
  Country: IT (occurrence: IT)
  Receive Date: 20220701
  Receipt Date: 20220725
  Transmission Date: 20221027
  Serious: Yes (Life-Threatening, Hospitalization, Other)
  Sender: FDA-Public Use
  Company Number: IT-AUROBINDO-AUR-APL-2022-023753

PATIENT
  Age: 70 Year
  Sex: Female

DRUGS (5)
  1. LINEZOLID [Suspect]
     Active Substance: LINEZOLID
     Indication: Wound infection staphylococcal
     Dosage: 600 MILLIGRAM, BID (INFUSION)
     Route: 065
     Dates: start: 20200527
  2. LINEZOLID [Suspect]
     Active Substance: LINEZOLID
     Indication: Postoperative wound infection
  3. TIGECYCLINE [Suspect]
     Active Substance: TIGECYCLINE
     Indication: Wound infection staphylococcal
     Dosage: 50 MILLIGRAM, QD
     Route: 065
     Dates: start: 20200525
  4. RIFAMPIN [Suspect]
     Active Substance: RIFAMPIN
     Indication: Wound infection staphylococcal
     Dosage: 600 MILLIGRAM, QD
     Route: 065
     Dates: start: 20200525
  5. FOSFOMYCIN [Concomitant]
     Active Substance: FOSFOMYCIN
     Indication: Wound infection staphylococcal
     Dosage: 4 GRAM, Q4D
     Route: 065
     Dates: start: 202006

REACTIONS (8)
  - Hyperlactacidaemia [Recovered/Resolved]
  - Toxicity to various agents [Recovered/Resolved]
  - Thrombocytopenia [Unknown]
  - Lactic acidosis [Recovered/Resolved]
  - Hypocapnia [Recovered/Resolved]
  - Hypoglycaemia [Recovered/Resolved]
  - Coagulation time prolonged [Recovered/Resolved]
  - Drug ineffective [Unknown]

NARRATIVE: CASE EVENT DATE: 20200101
